FAERS Safety Report 12816610 (Version 1)
Quarter: 2016Q4

REPORT INFORMATION
  Report Type: Spontaneous
  Country: US (occurrence: US)
  Receive Date: 20161005
  Receipt Date: 20161005
  Transmission Date: 20170207
  Serious: No
  Sender: FDA-Public Use
  Company Number: US-AMGEN-USASP2015100941

PATIENT
  Age: 60 Year
  Sex: Female
  Weight: 55.33 kg

DRUGS (1)
  1. PROLIA [Suspect]
     Active Substance: DENOSUMAB
     Indication: OSTEOPOROSIS
     Dosage: UNK, Q6MO
     Route: 058
     Dates: start: 20150713, end: 20150803

REACTIONS (17)
  - Diarrhoea [Unknown]
  - Insomnia [Unknown]
  - Fatigue [Unknown]
  - Oral pain [Unknown]
  - Pain [Unknown]
  - Arthritis [Unknown]
  - Dysgeusia [Unknown]
  - Toothache [Unknown]
  - Ear pain [Unknown]
  - Headache [Unknown]
  - Hot flush [Unknown]
  - Sinusitis [Unknown]
  - Back pain [Unknown]
  - Pain in jaw [Not Recovered/Not Resolved]
  - Asthenia [Unknown]
  - Groin pain [Unknown]
  - Arthralgia [Unknown]

NARRATIVE: CASE EVENT DATE: 201507
